FAERS Safety Report 16121965 (Version 5)
Quarter: 2020Q4

REPORT INFORMATION
  Report Type: Spontaneous
  Country: US (occurrence: US)
  Receive Date: 20190327
  Receipt Date: 20201104
  Transmission Date: 20210113
  Serious: No
  Sender: FDA-Public Use
  Company Number: US-PFIZER INC-2019133914

PATIENT
  Age: 50 Year
  Sex: Female
  Weight: 56.7 kg

DRUGS (2)
  1. DILANTIN [Suspect]
     Active Substance: PHENYTOIN
     Indication: SEIZURE
     Dosage: 100 MG, 4X/DAY [100MG 1 CAPSULE BY MOUTH 4 TIMES A DAY]
     Route: 048
  2. DILANTIN [Suspect]
     Active Substance: PHENYTOIN
     Indication: STATUS EPILEPTICUS

REACTIONS (2)
  - Dysphonia [Unknown]
  - Blood test abnormal [Unknown]
